FAERS Safety Report 8103205-1 (Version None)
Quarter: 2012Q1

REPORT INFORMATION
  Report Type: 
  Country: None (occurrence: None)
  Receive Date: 20120127
  Receipt Date: 20120112
  Transmission Date: 20120608
  Serious: Yes (Hospitalization)
  Sender: FDA-Public Use
  Company Number: NL-DEXPHARM-20112130

PATIENT
  Age: 83 Year
  Sex: Male

DRUGS (2)
  1. ACETYLSALICYLIC ACID SRT [Concomitant]
  2. OMEPRAZOLE [Suspect]

REACTIONS (5)
  - CEREBRAL INFARCTION [None]
  - TUBULOINTERSTITIAL NEPHRITIS [None]
  - BLOOD PRESSURE SYSTOLIC INCREASED [None]
  - ANTINEUTROPHIL CYTOPLASMIC ANTIBODY POSITIVE [None]
  - RENAL IMPAIRMENT [None]
